FAERS Safety Report 7320005-0 (Version None)
Quarter: 2011Q1

REPORT INFORMATION
  Report Type: 
  Country: None (occurrence: None)
  Receive Date: 20110228
  Receipt Date: 20110218
  Transmission Date: 20110831
  Serious: Yes (Hospitalization, Other)
  Sender: FDA-Public Use
  Company Number: IL-GENZYME-POMP-1000986

PATIENT
  Sex: Male

DRUGS (3)
  1. CYTOXAN [Suspect]
     Indication: IMMUNOSUPPRESSION
  2. IMMUNE GLOBULIN NOS [Suspect]
     Indication: IMMUNOSUPPRESSION
  3. MYOZYME [Suspect]
     Indication: GLYCOGEN STORAGE DISEASE TYPE II
     Dosage: 20 MG/KG, Q2W
     Route: 042
     Dates: start: 20060531

REACTIONS (4)
  - ATELECTASIS [None]
  - PYREXIA [None]
  - HYPERTROPHIC CARDIOMYOPATHY [None]
  - CARDIAC HYPERTROPHY [None]
